FAERS Safety Report 5943573-X (Version None)
Quarter: 2008Q4

REPORT INFORMATION
  Report Type: 
  Country: None (occurrence: None)
  Receive Date: 20081106
  Receipt Date: 20081029
  Transmission Date: 20090506
  Serious: Yes (Other)
  Sender: FDA-Public Use
  Company Number: PHHY2008AU26602

PATIENT
  Sex: Male

DRUGS (6)
  1. CLOZARIL [Suspect]
     Indication: SCHIZOPHRENIA
     Dosage: UNK
     Dates: start: 19990919, end: 20020101
  2. CLOZARIL [Suspect]
     Dosage: UNK
     Dates: end: 20060701
  3. CLOZARIL [Suspect]
     Dosage: 600 MG DAILY NOCTE
     Dates: start: 20060701, end: 20080201
  4. CLOZARIL [Suspect]
     Dosage: 600 MG DAILY
     Dates: start: 20081001
  5. CLOZAPINE [Suspect]
     Indication: SCHIZOPHRENIA
     Dosage: 600 MG DAILY
     Dates: start: 20080201, end: 20081001
  6. SEROQUEL [Suspect]
     Dosage: UNK

REACTIONS (11)
  - BLOOD CHOLESTEROL INCREASED [None]
  - BLOOD GLUCOSE INCREASED [None]
  - BLOOD TRIGLYCERIDES INCREASED [None]
  - EJECTION FRACTION DECREASED [None]
  - HYPERTENSION [None]
  - LEFT VENTRICULAR DYSFUNCTION [None]
  - LYMPHOCYTOSIS [None]
  - NEUROLEPTIC MALIGNANT SYNDROME [None]
  - NEUTROPHILIA [None]
  - SINUS TACHYCARDIA [None]
  - TREATMENT NONCOMPLIANCE [None]
